FAERS Safety Report 4538162-8 (Version None)
Quarter: 2004Q4

REPORT INFORMATION
  Report Type: 
  Country: None (occurrence: None)
  Receive Date: 20041223
  Receipt Date: 20041223
  Transmission Date: 20050328
  Serious: No
  Sender: FDA-Public Use
  Company Number: None

PATIENT
  Sex: Male
  Weight: 74.8435 kg

DRUGS (1)
  1. EFFEXOR [Suspect]
     Dosage: 100MG  200 MG A DAY

REACTIONS (1)
  - CORONARY ARTERY SURGERY [None]
